FAERS Safety Report 8170346-2 (Version None)
Quarter: 2012Q1

REPORT INFORMATION
  Report Type: 
  Country: None (occurrence: None)
  Receive Date: 20120228
  Receipt Date: 20120221
  Transmission Date: 20120608
  Serious: Yes (Disabling)
  Sender: FDA-Public Use
  Company Number: FR-ASTELLAS-2012EU000808

PATIENT
  Sex: Female

DRUGS (3)
  1. CORTICOSTEROID NOS [Concomitant]
     Dosage: UNK
     Route: 065
  2. TACROLIMUS [Suspect]
     Indication: LIVER TRANSPLANT
     Dosage: 8 MG, UNKNOWN/D
     Route: 065
     Dates: start: 20111028
  3. PROGRAF [Suspect]
     Indication: LIVER TRANSPLANT
     Dosage: 8 MG, UNKNOWN/D
     Route: 065

REACTIONS (2)
  - MEDICATION ERROR [None]
  - ADVERSE DRUG REACTION [None]
